FAERS Safety Report 4785600-1 (Version None)
Quarter: 2005Q4

REPORT INFORMATION
  Report Type: 
  Country: None (occurrence: None)
  Receive Date: 20051003
  Receipt Date: 20050923
  Transmission Date: 20060501
  Serious: Yes (Life-Threatening)
  Sender: FDA-Public Use
  Company Number: US-GLAXOSMITHKLINE-A0576114A

PATIENT
  Age: 70 Year
  Sex: Male
  Weight: 100.8 kg

DRUGS (12)
  1. TOSITUMOMAB [Suspect]
     Indication: NON-HODGKIN'S LYMPHOMA
     Dosage: 450MG SINGLE DOSE
     Route: 042
     Dates: start: 20020816, end: 20020816
  2. IODINE I 131 TOSITUMOMAB [Suspect]
     Indication: NON-HODGKIN'S LYMPHOMA
     Dosage: 5.35MCI SINGLE DOSE
     Route: 042
     Dates: start: 20050816, end: 20050816
  3. TOSITUMOMAB [Suspect]
     Dosage: 450MG SINGLE DOSE
     Route: 042
     Dates: start: 20020823, end: 20020823
  4. IODINE I 131 TOSITUMOMAB [Suspect]
     Dosage: 109MCI SINGLE DOSE
     Route: 042
     Dates: start: 20020823, end: 20020823
  5. CYCLOPHOSPHAMIDE [Suspect]
  6. PENTOSTATIN [Suspect]
  7. LASIX [Concomitant]
  8. ZOCOR [Concomitant]
  9. HYZAAR [Concomitant]
  10. ACTAL [Concomitant]
  11. AVANDIA [Concomitant]
  12. POTASSIUM [Concomitant]

REACTIONS (5)
  - ASTHENIA [None]
  - DIZZINESS [None]
  - DYSPNOEA [None]
  - FATIGUE [None]
  - MYELODYSPLASTIC SYNDROME [None]
